FAERS Safety Report 15327070 (Version 1)
Quarter: 2018Q3

REPORT INFORMATION
  Report Type: Spontaneous
  Country: US (occurrence: US)
  Receive Date: 20180823
  Receipt Date: 20180823
  Transmission Date: 20181010
  Serious: Yes (Disabling)
  Sender: FDA-Public Use
  Company Number: None

PATIENT
  Age: 71 Year
  Sex: Male
  Weight: 83.7 kg

DRUGS (1)
  1. LIPITOR [Suspect]
     Active Substance: ATORVASTATIN CALCIUM
     Indication: HYPERCHOLESTEROLAEMIA
     Dates: start: 20010510

REACTIONS (10)
  - Hypoaesthesia [None]
  - Exercise lack of [None]
  - Back pain [None]
  - Impaired work ability [None]
  - Sleep disorder due to general medical condition, insomnia type [None]
  - Sciatica [None]
  - Peripheral sensory neuropathy [None]
  - Pain in extremity [None]
  - Burning sensation [None]
  - Peripheral sensorimotor neuropathy [None]

NARRATIVE: CASE EVENT DATE: 20070501
